FAERS Safety Report 22321585 (Version 1)
Quarter: 2023Q2

REPORT INFORMATION
  Report Type: Spontaneous
  Country: US (occurrence: US)
  Receive Date: 20230515
  Receipt Date: 20230515
  Transmission Date: 20230721
  Serious: No
  Sender: FDA-Public Use
  Company Number: US-BAUSCHBL-2023BNL003981

PATIENT
  Age: 68 Year
  Sex: Female
  Weight: 63.56 kg

DRUGS (25)
  1. LOTEMAX SM [Suspect]
     Active Substance: LOTEPREDNOL ETABONATE
     Indication: Ocular hyperaemia
     Route: 047
     Dates: start: 20230326
  2. LOTEMAX SM [Suspect]
     Active Substance: LOTEPREDNOL ETABONATE
     Indication: Inflammation
  3. LEVOTHYROXINE [Concomitant]
     Active Substance: LEVOTHYROXINE
     Indication: Product used for unknown indication
     Route: 048
  4. LEXAPRO [Concomitant]
     Active Substance: ESCITALOPRAM OXALATE
     Indication: Product used for unknown indication
     Route: 048
  5. LEXAPRO [Concomitant]
     Active Substance: ESCITALOPRAM OXALATE
     Dosage: AS DIRECTED
     Route: 048
  6. LEXAPRO [Concomitant]
     Active Substance: ESCITALOPRAM OXALATE
     Dosage: AS DIRECTED
     Route: 048
  7. LEXAPRO [Concomitant]
     Active Substance: ESCITALOPRAM OXALATE
     Route: 048
  8. SOLIFENACIN [Concomitant]
     Active Substance: SOLIFENACIN
     Indication: Product used for unknown indication
     Dosage: AS DIRECTED
     Route: 048
  9. SOLIFENACIN [Concomitant]
     Active Substance: SOLIFENACIN
     Dosage: AS DIRECTED
     Route: 048
  10. SOLIFENACIN [Concomitant]
     Active Substance: SOLIFENACIN
     Dosage: AS DIRECTED
     Route: 048
  11. ROSUVASTATIN [Concomitant]
     Active Substance: ROSUVASTATIN
     Indication: Product used for unknown indication
     Route: 048
  12. ROSUVASTATIN [Concomitant]
     Active Substance: ROSUVASTATIN
     Dosage: AS DIRECTED
     Route: 048
  13. ROSUVASTATIN [Concomitant]
     Active Substance: ROSUVASTATIN
     Dosage: AS DIRECTED
     Route: 048
  14. ROSUVASTATIN [Concomitant]
     Active Substance: ROSUVASTATIN
     Route: 048
  15. ROSUVASTATIN [Concomitant]
     Active Substance: ROSUVASTATIN
     Route: 048
  16. PROLIA [Concomitant]
     Active Substance: DENOSUMAB
     Indication: Product used for unknown indication
     Dosage: AS DIRECTED
     Route: 042
  17. PROLIA [Concomitant]
     Active Substance: DENOSUMAB
     Dosage: AS DIRECTED
     Route: 048
  18. PROLIA [Concomitant]
     Active Substance: DENOSUMAB
     Dosage: AS DIRECTED
     Route: 048
  19. PROLIA [Concomitant]
     Active Substance: DENOSUMAB
     Dosage: AS DIRECTED
     Route: 042
  20. CALCIUM [Concomitant]
     Active Substance: CALCIUM
     Indication: Product used for unknown indication
     Dosage: AS DIRECTED
     Route: 048
  21. CALCIUM [Concomitant]
     Active Substance: CALCIUM
     Dosage: AS DIRECTED
     Route: 048
  22. CALCIUM [Concomitant]
     Active Substance: CALCIUM
     Dosage: AS DIRECTED
     Route: 048
  23. PROBIOTICS NOS [Concomitant]
     Active Substance: PROBIOTICS NOS
     Indication: Product used for unknown indication
     Dosage: AS DIRECTED
     Route: 048
  24. PROBIOTICS NOS [Concomitant]
     Active Substance: PROBIOTICS NOS
     Dosage: AS DIRECTED
     Route: 048
  25. PROBIOTICS NOS [Concomitant]
     Active Substance: PROBIOTICS NOS
     Dosage: AS DIRECTED
     Route: 048

REACTIONS (8)
  - Dyspnoea [Not Recovered/Not Resolved]
  - Palpitations [Not Recovered/Not Resolved]
  - Heart rate increased [Not Recovered/Not Resolved]
  - Chest discomfort [Not Recovered/Not Resolved]
  - Dizziness [Not Recovered/Not Resolved]
  - Nausea [Not Recovered/Not Resolved]
  - Blood urea increased [Unknown]
  - Off label use [Unknown]

NARRATIVE: CASE EVENT DATE: 20230326
